FAERS Safety Report 10151440 (Version 2)
Quarter: 2014Q2

REPORT INFORMATION
  Report Type: Spontaneous
  Country: US (occurrence: US)
  Receive Date: 20140504
  Receipt Date: 20140604
  Transmission Date: 20141212
  Serious: Yes (Hospitalization)
  Sender: FDA-Public Use
  Company Number: GXBR2014US001146

PATIENT
  Age: 59 Year
  Sex: Female
  Weight: 111.11 kg

DRUGS (17)
  1. HYDROXYCHLOROQUINE SULFATE TABLETS USP [Suspect]
     Indication: SARCOIDOSIS
     Dosage: 200 MG, BID
     Dates: end: 201206
  2. HYDROXYCHLOROQUINE SULFATE TABLETS USP [Suspect]
     Indication: ARTHRALGIA
  3. HYDROXYCHLOROQUINE SULFATE TABLETS USP [Suspect]
     Indication: MYALGIA
  4. PANTOPRAZOLE [Concomitant]
     Indication: GASTROOESOPHAGEAL REFLUX DISEASE
     Dosage: 40 MG, QD
     Dates: start: 2012
  5. MORPHINE [Concomitant]
     Indication: PAIN IN EXTREMITY
     Dosage: 60 MG, TID
     Route: 048
     Dates: start: 2008
  6. MORPHINE [Concomitant]
     Indication: INTERVERTEBRAL DISC DEGENERATION
  7. OXYCODONE [Concomitant]
     Indication: PAIN
     Dosage: 10 MG, Q8H PRN
     Dates: start: 2008
  8. OXYCODONE [Concomitant]
     Indication: INTERVERTEBRAL DISC DEGENERATION
  9. METFORMIN [Concomitant]
     Indication: TYPE 2 DIABETES MELLITUS
     Dosage: 500 MG, BID
     Route: 048
     Dates: start: 2012
  10. GABAPENTIN [Concomitant]
     Indication: NEUROPATHY PERIPHERAL
     Dosage: 600 MG, TID
     Route: 048
     Dates: start: 2009
  11. CETIRIZINE [Concomitant]
     Indication: SINUS CONGESTION
     Dosage: 10 MG, QD
     Dates: start: 2010
  12. CETIRIZINE [Concomitant]
     Indication: HYPERSENSITIVITY
  13. TOPIRAMATE [Concomitant]
     Indication: PAIN IN EXTREMITY
     Dosage: 150 MG, BID
     Route: 048
     Dates: start: 2009
  14. TOPIRAMATE [Concomitant]
     Indication: PAIN IN EXTREMITY
  15. AMLODIPINE [Concomitant]
     Indication: HYPERTENSION
     Dosage: 10 MG, UNK
     Dates: start: 2009
  16. ALBUTEROL [Concomitant]
     Indication: ASTHMA
     Dosage: 2 DF, Q4H PRN
     Route: 055
     Dates: start: 2008
  17. ZANAFLEX [Concomitant]
     Indication: MUSCLE SPASMS
     Dosage: 8 MG, Q8H
     Dates: start: 2009

REACTIONS (10)
  - Haemoptysis [Recovered/Resolved]
  - Bronchitis [Recovered/Resolved]
  - Dyspnoea [Recovered/Resolved]
  - Joint swelling [Recovered/Resolved]
  - Alopecia [Recovered/Resolved]
  - Tinnitus [Recovered/Resolved]
  - Dizziness [Recovered/Resolved]
  - Headache [Recovered/Resolved]
  - Fatigue [Recovered/Resolved]
  - Formication [Recovered/Resolved]
